FAERS Safety Report 14780815 (Version 2)
Quarter: 2018Q2

REPORT INFORMATION
  Report Type: Spontaneous
  Country: AU (occurrence: AU)
  Receive Date: 20180419
  Receipt Date: 20180503
  Transmission Date: 20180711
  Serious: Yes (Other)
  Sender: FDA-Public Use
  Company Number: AU-GLAXOSMITHKLINE-AU2018GSK068140

PATIENT
  Sex: Female

DRUGS (2)
  1. NEOTIGASON [Suspect]
     Active Substance: ACITRETIN
     Indication: DERMATITIS PSORIASIFORM
     Dosage: 10 MG, UNK
     Route: 048
     Dates: start: 20180206
  2. DUROMINE [Concomitant]
     Active Substance: PHENTERMINE
     Indication: PRODUCT USED FOR UNKNOWN INDICATION
     Dosage: UNK

REACTIONS (9)
  - Skin exfoliation [Unknown]
  - Dry skin [Unknown]
  - Sticky skin [Unknown]
  - Adverse reaction [Unknown]
  - Bone pain [Unknown]
  - Alopecia [Not Recovered/Not Resolved]
  - Arthralgia [Unknown]
  - Toxicity to various agents [Unknown]
  - Back pain [Not Recovered/Not Resolved]
